FAERS Safety Report 10708093 (Version 5)
Quarter: 2015Q4

REPORT INFORMATION
  Report Type: Spontaneous
  Country: US (occurrence: US)
  Receive Date: 20150113
  Receipt Date: 20151030
  Transmission Date: 20160304
  Serious: Yes (Hospitalization)
  Sender: FDA-Public Use
  Company Number: US-PFIZER INC-2014318510

PATIENT
  Age: 32 Year
  Sex: Male
  Weight: 43 kg

DRUGS (3)
  1. REVATIO [Suspect]
     Active Substance: SILDENAFIL CITRATE
     Dosage: 80 MG, 3X/DAY
     Route: 048
  2. REVATIO [Suspect]
     Active Substance: SILDENAFIL CITRATE
     Dosage: 4X20MG TABLETS, UNK
  3. REVATIO [Suspect]
     Active Substance: SILDENAFIL CITRATE
     Indication: PULMONARY ARTERIAL HYPERTENSION
     Dosage: 20 MG X 3 TABLETS, THREE TIMES A DAY (EVERY 8 HOURS)
     Dates: start: 201010

REACTIONS (6)
  - Cardiac failure congestive [Recovered/Resolved]
  - Blood creatinine increased [Recovering/Resolving]
  - Product use issue [Unknown]
  - Trisomy 21 [Recovered/Resolved]
  - Renal disorder [Recovered/Resolved]
  - Blood urea increased [Recovering/Resolving]

NARRATIVE: CASE EVENT DATE: 201010
